FAERS Safety Report 16335793 (Version 1)
Quarter: 2019Q2

REPORT INFORMATION
  Report Type: Spontaneous
  Country: US (occurrence: US)
  Receive Date: 20190521
  Receipt Date: 20190521
  Transmission Date: 20190711
  Serious: No
  Sender: FDA-Public Use
  Company Number: US-AMGEN-USASP2019076319

PATIENT
  Age: 82 Year
  Sex: Female

DRUGS (1)
  1. PROLIA [Suspect]
     Active Substance: DENOSUMAB
     Indication: OSTEOPOROSIS POSTMENOPAUSAL
     Dosage: 60 MILLIGRAM, Q6MO
     Route: 065

REACTIONS (5)
  - Impaired healing [Unknown]
  - Temporomandibular joint syndrome [Unknown]
  - Arthritis [Unknown]
  - Dental care [Unknown]
  - Dental prosthesis placement [Unknown]

NARRATIVE: CASE EVENT DATE: 201810
